FAERS Safety Report 6610038-1 (Version None)
Quarter: 2010Q1

REPORT INFORMATION
  Report Type: 
  Country: None (occurrence: None)
  Receive Date: 20100302
  Receipt Date: 20100225
  Transmission Date: 20100710
  Serious: Yes (Hospitalization)
  Sender: FDA-Public Use
  Company Number: ES-ROCHE-687107

PATIENT
  Age: 55 Year
  Sex: Male

DRUGS (2)
  1. RIVOTRIL [Suspect]
     Route: 048
     Dates: start: 20090216, end: 20090222
  2. NOCTAMID [Suspect]
     Route: 048
     Dates: start: 20090216, end: 20090222

REACTIONS (2)
  - COMA [None]
  - RESPIRATORY FAILURE [None]
